FAERS Safety Report 17326672 (Version 2)
Quarter: 2020Q1

REPORT INFORMATION
  Report Type: Spontaneous
  Country: TJ (occurrence: TJ)
  Receive Date: 20200127
  Receipt Date: 20200316
  Transmission Date: 20200409
  Serious: Yes (Other)
  Sender: FDA-Public Use
  Company Number: NVSC2020TJ017488

PATIENT
  Age: 2 Year
  Sex: Male
  Weight: 14 kg

DRUGS (5)
  1. DELAMANID [Suspect]
     Active Substance: DELAMANID
     Indication: PULMONARY TUBERCULOSIS
     Dosage: 25 MG, BID
     Route: 065
     Dates: start: 20191119
  2. CLOFAZIMINE [Suspect]
     Active Substance: CLOFAZIMINE
     Indication: PULMONARY TUBERCULOSIS
     Dosage: 50 MG, TIW
     Route: 065
     Dates: start: 20191119
  3. CYCLOSERINE. [Suspect]
     Active Substance: CYCLOSERINE
     Indication: PULMONARY TUBERCULOSIS
     Dosage: 250 MG
     Route: 065
     Dates: start: 20191119, end: 20200103
  4. LINEZOLID. [Suspect]
     Active Substance: LINEZOLID
     Indication: PULMONARY TUBERCULOSIS
     Dosage: 150 MG
     Route: 065
     Dates: start: 20191119
  5. CYCLOSERINE. [Suspect]
     Active Substance: CYCLOSERINE
     Dosage: 250 MG
     Route: 065
     Dates: start: 20200105

REACTIONS (2)
  - Hallucination, visual [Recovered/Resolved]
  - Product use issue [Unknown]

NARRATIVE: CASE EVENT DATE: 20191227
